FAERS Safety Report 5913263-8 (Version None)
Quarter: 2008Q4

REPORT INFORMATION
  Report Type: 
  Country: None (occurrence: None)
  Receive Date: 20081007
  Receipt Date: 20080923
  Transmission Date: 20090506
  Serious: Yes (Other)
  Sender: FDA-Public Use
  Company Number: GXKR2008DE08581

PATIENT
  Age: 38 Year
  Sex: Male

DRUGS (5)
  1. ANAGRELIDE HCL [Suspect]
     Indication: ESSENTIAL THROMBOCYTHAEMIA
     Dosage: 500 MG, BID
  2. ACETYLSALICYLIC ACID SRT [Concomitant]
  3. ALLOPURINOL [Concomitant]
  4. LISINOPRIL [Concomitant]
  5. BISOPROLOL FUMARATE [Concomitant]

REACTIONS (4)
  - DERMATITIS [None]
  - ERYTHEMA [None]
  - PAIN [None]
  - SKIN ULCER [None]
